FAERS Safety Report 9222479 (Version 3)
Quarter: 2013Q3

REPORT INFORMATION
  Report Type: Spontaneous
  Country: US (occurrence: US)
  Receive Date: 20130410
  Receipt Date: 20130705
  Transmission Date: 20140515
  Serious: Yes (Hospitalization, Other)
  Sender: FDA-Public Use
  Company Number: US-SANOFI-AVENTIS-2013SA035621

PATIENT
  Age: 57 Year
  Sex: Female
  Weight: 55.34 kg

DRUGS (12)
  1. AUBAGIO [Suspect]
     Indication: MULTIPLE SCLEROSIS
     Route: 048
     Dates: start: 20130124, end: 20130319
  2. AUBAGIO [Suspect]
     Indication: MULTIPLE SCLEROSIS
     Route: 048
     Dates: start: 20130415, end: 20130429
  3. AMLODIPINE [Concomitant]
     Route: 048
  4. TEMAZEPAM [Concomitant]
     Route: 048
  5. ALPRAZOLAM [Concomitant]
     Route: 048
  6. ASPIRIN [Concomitant]
     Route: 048
  7. ENABLEX [Concomitant]
     Route: 048
  8. PHENYTOIN [Concomitant]
     Route: 048
  9. OMEPRAZOLE [Concomitant]
     Route: 048
  10. GABAPENTIN [Concomitant]
     Route: 048
  11. NORTRIPTYLINE [Concomitant]
     Route: 048
  12. MORPHINE [Concomitant]
     Route: 048

REACTIONS (8)
  - Convulsion [Recovered/Resolved]
  - Loss of consciousness [Unknown]
  - Amnesia [Unknown]
  - Fall [Not Recovered/Not Resolved]
  - Upper limb fracture [Not Recovered/Not Resolved]
  - Oedema [Unknown]
  - Blood potassium decreased [Unknown]
  - Tremor [Unknown]
